FAERS Safety Report 7353576-9 (Version None)
Quarter: 2011Q1

REPORT INFORMATION
  Report Type: 
  Country: None (occurrence: None)
  Receive Date: 20110315
  Receipt Date: 20110311
  Transmission Date: 20110831
  Serious: Yes (Death)
  Sender: FDA-Public Use
  Company Number: AU-NAPPMUNDI-GBR-2010-0007492

PATIENT
  Age: 56 Year
  Sex: Female

DRUGS (5)
  1. MORPHINE SULDATE [Suspect]
     Indication: PRODUCT USED FOR UNKNOWN INDICATION
  2. METOCLOPRAMIDE HCL [Interacting]
  3. TRAMADOL [Interacting]
  4. PROMETHAZINE [Interacting]
  5. SERTRALINE [Interacting]

REACTIONS (3)
  - DRUG INTERACTION [None]
  - CONTRAINDICATION TO MEDICAL TREATMENT [None]
  - DEATH [None]
